FAERS Safety Report 6431310-4 (Version None)
Quarter: 2009Q4

REPORT INFORMATION
  Report Type: 
  Country: None (occurrence: None)
  Receive Date: 20091106
  Receipt Date: 20091027
  Transmission Date: 20100525
  Serious: Yes (Other)
  Sender: FDA-Public Use
  Company Number: US-PFIZER INC-2009289951

PATIENT
  Sex: Female

DRUGS (1)
  1. RELPAX [Suspect]

REACTIONS (3)
  - HEADACHE [None]
  - MENINGITIS [None]
  - SWELLING FACE [None]
